FAERS Safety Report 6955690-6 (Version None)
Quarter: 2010Q3

REPORT INFORMATION
  Report Type: 
  Country: None (occurrence: None)
  Receive Date: 20100830
  Receipt Date: 20100825
  Transmission Date: 20110219
  Serious: Yes (Hospitalization)
  Sender: FDA-Public Use
  Company Number: IE-ROCHE-716445

PATIENT
  Sex: Female
  Weight: 54 kg

DRUGS (6)
  1. BONIVA [Suspect]
     Indication: OSTEOPOROSIS
     Route: 048
     Dates: start: 20091228, end: 20091230
  2. ELTROXIN [Concomitant]
     Indication: HYPOTHYROIDISM
     Route: 048
  3. LIPITOR [Concomitant]
     Indication: HYPOCHOLESTEROLAEMIA
     Dosage: FREQUENCY: NOCTE
     Route: 048
  4. IDEOS [Concomitant]
     Indication: OSTEOPOROSIS
     Dosage: DOSE: CALCIUM 500 MG AND VITAMIN D 900 IU. FREQUENCY: OD.
     Route: 048
  5. IDEOS [Concomitant]
     Route: 048
  6. STILNOCT [Concomitant]

REACTIONS (1)
  - CONVULSION [None]
